FAERS Safety Report 6153125-7 (Version None)
Quarter: 2009Q2

REPORT INFORMATION
  Report Type: 
  Country: None (occurrence: None)
  Receive Date: 20090409
  Receipt Date: 20090328
  Transmission Date: 20091009
  Serious: Yes (Hospitalization, Other)
  Sender: FDA-Public Use
  Company Number: 230684J07USA

PATIENT
  Age: 66 Year
  Sex: Female
  Weight: 50 kg

DRUGS (3)
  1. REBIF [Suspect]
     Indication: MULTIPLE SCLEROSIS
     Dosage: 44 MCG, 3 IN 1 WEEKS, SUBCUTANEOUS; 44 MCG, 3 IN 1 WEEKS, SUBCUTANEOUS
     Route: 058
     Dates: start: 20030411, end: 20080401
  2. TYLENOL (COTYLENOL) [Concomitant]
  3. ACIDOPHILUS (LACTOBACILLUS ACIDOPHILUS) [Concomitant]

REACTIONS (11)
  - BASAL CELL CARCINOMA [None]
  - BLOOD TEST ABNORMAL [None]
  - BREAST DISORDER [None]
  - DRUG HYPERSENSITIVITY [None]
  - FALL [None]
  - HYPERSENSITIVITY [None]
  - LYMPHADENOPATHY [None]
  - MULTIPLE SCLEROSIS [None]
  - RENAL DISORDER [None]
  - SKIN LESION [None]
  - URINARY TRACT INFECTION [None]
